FAERS Safety Report 18864944 (Version 1)
Quarter: 2021Q1

REPORT INFORMATION
  Report Type: Spontaneous
  Country: ES (occurrence: ES)
  Receive Date: 20210209
  Receipt Date: 20210209
  Transmission Date: 20210420
  Serious: Yes (Hospitalization)
  Sender: FDA-Public Use
  Company Number: NVSC2021ES023643

PATIENT
  Age: 75 Year
  Sex: Male

DRUGS (4)
  1. OMEPRAZOL [Concomitant]
     Active Substance: OMEPRAZOLE
     Indication: PROPHYLAXIS
     Dosage: 20 MG, Q24H
     Route: 048
     Dates: start: 20200901, end: 20201223
  2. ATORVASTATIN [Suspect]
     Active Substance: ATORVASTATIN
     Indication: ACUTE MYOCARDIAL INFARCTION
     Dosage: 80 MG, Q24H
     Route: 048
     Dates: start: 20200901, end: 20201224
  3. TICAGRELOR. [Concomitant]
     Active Substance: TICAGRELOR
     Indication: PROPHYLAXIS
     Dosage: 90 MG, Q12H
     Route: 048
     Dates: start: 20200901
  4. DILTIAZEM HYDROCHLORIDE. [Suspect]
     Active Substance: DILTIAZEM HYDROCHLORIDE
     Indication: ACUTE MYOCARDIAL INFARCTION
     Dosage: 120 MG, Q24H
     Route: 048
     Dates: start: 20201001, end: 20201224

REACTIONS (1)
  - Hepatitis cholestatic [Recovered/Resolved]

NARRATIVE: CASE EVENT DATE: 20201216
